FAERS Safety Report 4499987-0 (Version None)
Quarter: 2004Q4

REPORT INFORMATION
  Report Type: 
  Country: None (occurrence: None)
  Receive Date: 20041110
  Receipt Date: 20041104
  Transmission Date: 20050328
  Serious: Yes (Hospitalization)
  Sender: FDA-Public Use
  Company Number: 04-11-1528

PATIENT
  Age: 69 Year
  Sex: Female

DRUGS (1)
  1. CLOZAPINE [Suspect]
     Dosage: 25MG QD ORAL
     Route: 048
     Dates: start: 20030101

REACTIONS (2)
  - ANKLE FRACTURE [None]
  - ARRHYTHMIA [None]
